FAERS Safety Report 18573002 (Version 1)
Quarter: 2020Q4

REPORT INFORMATION
  Report Type: Spontaneous
  Country: DE (occurrence: DE)
  Receive Date: 20201203
  Receipt Date: 20201203
  Transmission Date: 20210114
  Serious: Yes (Hospitalization)
  Sender: FDA-Public Use
  Company Number: DE-TEVA-2020-DE-1854214

PATIENT
  Age: 2 Year
  Sex: Female
  Weight: 17 kg

DRUGS (1)
  1. CEFACLOR SAFT [Suspect]
     Active Substance: CEFACLOR
     Indication: OTITIS MEDIA
     Dosage: 2X DAILY
     Route: 048

REACTIONS (3)
  - Condition aggravated [Recovered/Resolved]
  - Product administration error [Recovered/Resolved]
  - Treatment noncompliance [Recovered/Resolved]

NARRATIVE: CASE EVENT DATE: 20180705
